FAERS Safety Report 7463232-4 (Version None)
Quarter: 2011Q2

REPORT INFORMATION
  Report Type: 
  Country: None (occurrence: None)
  Receive Date: 20110506
  Receipt Date: 20110426
  Transmission Date: 20111010
  Serious: Yes (Death, Other)
  Sender: FDA-Public Use
  Company Number: US-CELGENEUS-163-21880-11023058

PATIENT
  Sex: Female

DRUGS (11)
  1. LEVOTHYROXINE SODIUM [Concomitant]
     Route: 065
  2. LUTEIN [Concomitant]
     Route: 065
  3. REVLIMID [Suspect]
     Indication: MULTIPLE MYELOMA
     Dosage: 10 MILLIGRAM
     Route: 048
     Dates: start: 20110210, end: 20110421
  4. GARLIC [Concomitant]
     Route: 065
  5. DEXAMETHASONE [Concomitant]
     Indication: DEHYDRATION
     Route: 065
  6. MEDICATION [Concomitant]
     Indication: HYPERTENSION
     Route: 065
  7. COLACE [Concomitant]
     Route: 065
  8. ARANESP [Concomitant]
     Route: 065
  9. LEXAPRO [Concomitant]
     Route: 065
  10. IRON [Concomitant]
     Route: 065
  11. MULTI-VITAMINS [Concomitant]
     Indication: DEHYDRATION
     Route: 065

REACTIONS (3)
  - DEATH [None]
  - FATIGUE [None]
  - DEHYDRATION [None]
